FAERS Safety Report 13477709 (Version 4)
Quarter: 2017Q4

REPORT INFORMATION
  Report Type: Spontaneous
  Country: DE (occurrence: DE)
  Receive Date: 20170425
  Receipt Date: 20171207
  Transmission Date: 20180320
  Serious: Yes (Life-Threatening, Other)
  Sender: FDA-Public Use
  Company Number: DE-PFIZER INC-2017173429

PATIENT
  Age: 72 Year
  Sex: Female

DRUGS (8)
  1. LEVETIRACETAM. [Suspect]
     Active Substance: LEVETIRACETAM
     Indication: STATUS EPILEPTICUS
     Dosage: 3 G, DAILY
  2. VALPROATE [Suspect]
     Active Substance: VALPROIC ACID
     Indication: STATUS EPILEPTICUS
     Dosage: 75 TO 110 MG/HOUR
  3. URAPIDIL [Concomitant]
     Active Substance: URAPIDIL
     Indication: BLOOD PRESSURE SYSTOLIC
     Dosage: 5 MG, SINGLE
     Route: 042
  4. LORAZEPAM. [Concomitant]
     Active Substance: LORAZEPAM
     Indication: STATUS EPILEPTICUS
     Dosage: 2 MG, SINGLE
     Route: 042
  5. PROPOFOL. [Concomitant]
     Active Substance: PROPOFOL
     Indication: SEDATION
     Dosage: UNK
  6. LEVODOPA [Concomitant]
     Active Substance: LEVODOPA
     Indication: PARKINSON^S DISEASE
     Dosage: 700 MG, DAILY
  7. REMIFENTANIL [Concomitant]
     Active Substance: REMIFENTANIL
     Indication: SEDATION
     Dosage: UNK
  8. LEVODOPA [Concomitant]
     Active Substance: LEVODOPA
     Dosage: MONOTHERAPY

REACTIONS (3)
  - Ammonia increased [Unknown]
  - Drug ineffective [Unknown]
  - Coma [Recovered/Resolved]

NARRATIVE: CASE EVENT DATE: 20150903
